FAERS Safety Report 4458985-3 (Version None)
Quarter: 2004Q3

REPORT INFORMATION
  Report Type: 
  Country: None (occurrence: None)
  Receive Date: 20040922
  Receipt Date: 20040922
  Transmission Date: 20050211
  Serious: No
  Sender: FDA-Public Use
  Company Number: None

PATIENT
  Age: 79 Year
  Sex: Male

DRUGS (1)
  1. HEPARIN [Suspect]
     Indication: THROMBOSIS
     Dosage: 17 ML/HR IV
     Route: 042

REACTIONS (4)
  - ACTIVATED PARTIAL THROMBOPLASTIN TIME ABNORMAL [None]
  - CATHETER SITE HAEMORRHAGE [None]
  - IMPLANT SITE HAEMORRHAGE [None]
  - MEDICATION ERROR [None]
